FAERS Safety Report 13981606 (Version 1)
Quarter: 2017Q3

REPORT INFORMATION
  Report Type: Spontaneous
  Country: IT (occurrence: IT)
  Receive Date: 20170918
  Receipt Date: 20170918
  Transmission Date: 20171128
  Serious: Yes (Hospitalization)
  Sender: FDA-Public Use
  Company Number: IT-TEVA-806629ACC

PATIENT
  Age: 66 Year
  Sex: Female

DRUGS (3)
  1. CLOMIPRAMINE [Suspect]
     Active Substance: CLOMIPRAMINE
     Indication: ANTIDEPRESSANT THERAPY
     Dosage: 40 MILLIGRAM DAILY;
     Route: 048
  2. DELORAZEPAM [Concomitant]
     Active Substance: DELORAZEPAM
     Indication: PRODUCT USED FOR UNKNOWN INDICATION
  3. OLANZAPINE. [Suspect]
     Active Substance: OLANZAPINE
     Indication: PRODUCT USED FOR UNKNOWN INDICATION

REACTIONS (6)
  - Fatigue [Unknown]
  - Hepatic failure [Unknown]
  - Jaundice [Unknown]
  - Nausea [Unknown]
  - Pruritus [Unknown]
  - Decreased appetite [Unknown]
